FAERS Safety Report 5140260-5 (Version None)
Quarter: 2006Q4

REPORT INFORMATION
  Report Type: 
  Country: None (occurrence: None)
  Receive Date: 20061026
  Receipt Date: 20061026
  Transmission Date: 20070319
  Serious: No
  Sender: FDA-Public Use
  Company Number: None

PATIENT
  Age: 56 Year
  Sex: Male
  Weight: 90 kg

DRUGS (1)
  1. WARFARIN SODIUM [Suspect]
     Indication: VENA CAVA FILTER INSERTION
     Dosage: 7.5 MG DAILY PO
     Route: 048
     Dates: start: 20060417, end: 20061024

REACTIONS (1)
  - ALOPECIA [None]
